FAERS Safety Report 16540189 (Version 1)
Quarter: 2019Q3

REPORT INFORMATION
  Report Type: Spontaneous
  Country: FR (occurrence: FR)
  Receive Date: 20190708
  Receipt Date: 20190708
  Transmission Date: 20191004
  Serious: Yes (Other)
  Sender: FDA-Public Use
  Company Number: FR-009507513-1907FRA001859

PATIENT
  Age: 63 Year
  Sex: Male

DRUGS (1)
  1. PEMBROLIZUMAB. [Suspect]
     Active Substance: PEMBROLIZUMAB
     Indication: MALIGNANT MELANOMA
     Dosage: UNK

REACTIONS (6)
  - Systemic lupus erythematosus [Recovered/Resolved]
  - Vitiligo [Unknown]
  - Subacute cutaneous lupus erythematosus [Recovered/Resolved]
  - Immune-mediated hepatitis [Unknown]
  - Lupus-like syndrome [Recovered/Resolved]
  - Immune-mediated adverse reaction [Unknown]
